FAERS Safety Report 17477892 (Version 1)
Quarter: 2020Q1

REPORT INFORMATION
  Report Type: Report from Study
  Country: ES (occurrence: ES)
  Receive Date: 20200228
  Receipt Date: 20200228
  Transmission Date: 20200409
  Serious: Yes (Other)
  Sender: FDA-Public Use
  Company Number: ES-JNJFOC-20191200477

PATIENT
  Age: 77 Year
  Sex: Female

DRUGS (1)
  1. STELARA [Suspect]
     Active Substance: USTEKINUMAB
     Indication: PSORIATIC ARTHROPATHY
     Dosage: 45 MG / 12 SEMANAS
     Route: 058
     Dates: start: 20150618

REACTIONS (2)
  - Bacterial diarrhoea [Recovered/Resolved]
  - Bacterial diarrhoea [Recovered/Resolved]

NARRATIVE: CASE EVENT DATE: 20190517
